FAERS Safety Report 20868941 (Version 1)
Quarter: 2022Q2

REPORT INFORMATION
  Report Type: Spontaneous
  Country: AU (occurrence: AU)
  Receive Date: 20220524
  Receipt Date: 20220524
  Transmission Date: 20220720
  Serious: Yes (Other)
  Sender: FDA-Public Use
  Company Number: AU-NOVARTISPH-NVSC2022AU115789

PATIENT
  Age: 63 Year

DRUGS (2)
  1. BEOVU [Suspect]
     Active Substance: BROLUCIZUMAB-DBLL
     Indication: Macular degeneration
     Dosage: UNK (20I02MAH)
     Route: 065
     Dates: start: 20220407
  2. PHENYLEPHRINE HYDROCHLORIDE\PREDNISOLONE ACETATE [Concomitant]
     Active Substance: PHENYLEPHRINE HYDROCHLORIDE\PREDNISOLONE ACETATE
     Indication: Product used for unknown indication
     Dosage: OVER 6 DAYS AND R/V 2 WEEKS
     Route: 065

REACTIONS (4)
  - Iridocyclitis [Recovered/Resolved]
  - Vitreous floaters [Recovering/Resolving]
  - Visual impairment [Recovering/Resolving]
  - Lacrimation increased [Recovering/Resolving]
